FAERS Safety Report 12598613 (Version 1)
Quarter: 2016Q3

REPORT INFORMATION
  Report Type: Spontaneous
  Country: TR (occurrence: TR)
  Receive Date: 20160726
  Receipt Date: 20160726
  Transmission Date: 20161109
  Serious: Yes (Other)
  Sender: FDA-Public Use
  Company Number: TR-BAXALTA-2016BLT005471

PATIENT
  Age: 2 Year
  Sex: Female

DRUGS (2)
  1. ACETYLSALICYLATE ARGININE [Concomitant]
     Indication: KAWASAKI^S DISEASE
     Route: 065
  2. KIOVIG [Suspect]
     Active Substance: HUMAN IMMUNOGLOBULIN G
     Indication: KAWASAKI^S DISEASE
     Dosage: 2 G/KG
     Route: 042

REACTIONS (1)
  - VIth nerve paralysis [Recovered/Resolved]
